FAERS Safety Report 4947495-2 (Version None)
Quarter: 2006Q1

REPORT INFORMATION
  Report Type: 
  Country: None (occurrence: None)
  Receive Date: 20060314
  Receipt Date: 20060222
  Transmission Date: 20060701
  Serious: Yes (Hospitalization, Other)
  Sender: FDA-Public Use
  Company Number: DE200602004695

PATIENT
  Age: 1 Year
  Sex: Female

DRUGS (4)
  1. HUMALOG [Suspect]
     Dates: start: 19960101, end: 20000101
  2. HUMALOG [Suspect]
     Dates: start: 20010801
  3. BELOC ZOK (METORPOLOL SUCCINATE) [Concomitant]
  4. COVERSUM/GFR/(PERINDOPRIL) [Concomitant]

REACTIONS (7)
  - ACTIVATED PROTEIN C RESISTANCE [None]
  - BLOOD PRESSURE INCREASED [None]
  - DRUG EXPOSURE DURING PREGNANCY [None]
  - HYPERCOAGULATION [None]
  - PULMONARY EMBOLISM [None]
  - SARCOIDOSIS [None]
  - VENOUS THROMBOSIS [None]
